FAERS Safety Report 19739037 (Version 2)
Quarter: 2021Q3

REPORT INFORMATION
  Report Type: Spontaneous
  Country: PL (occurrence: PL)
  Receive Date: 20210824
  Receipt Date: 20210830
  Transmission Date: 20211014
  Serious: Yes (Hospitalization, Other)
  Sender: FDA-Public Use
  Company Number: PL-MYLANLABS-2021M1013339

PATIENT
  Age: 15 Year
  Sex: Male

DRUGS (13)
  1. ROSUVASTATIN. [Suspect]
     Active Substance: ROSUVASTATIN
     Indication: PRODUCT USED FOR UNKNOWN INDICATION
     Dosage: UNK
  2. CYCLOPHOSPHAMIDE. [Suspect]
     Active Substance: CYCLOPHOSPHAMIDE
     Indication: PRODUCT USED FOR UNKNOWN INDICATION
     Dosage: 3 PULSES
     Route: 065
  3. METHYLPREDNISOLONE. [Suspect]
     Active Substance: METHYLPREDNISOLONE
     Indication: PRODUCT USED FOR UNKNOWN INDICATION
     Dosage: 17.8 MILLIGRAM/KILOGRAM
     Route: 042
  4. FENOFIBRATE. [Suspect]
     Active Substance: FENOFIBRATE
     Indication: PRODUCT USED FOR UNKNOWN INDICATION
     Dosage: UNK
  5. MYCOPHENOLATE MOFETIL. [Suspect]
     Active Substance: MYCOPHENOLATE MOFETIL
     Indication: IMMUNOSUPPRESSANT DRUG THERAPY
     Dosage: 861 MG/M 2PC
     Route: 065
  6. PREDNISONE. [Suspect]
     Active Substance: PREDNISONE
     Indication: GRANULOMATOSIS WITH POLYANGIITIS
     Dosage: 0.16 MILLIGRAM/KILOGRAM 48 HOURS
  7. ROSUVASTATIN                       /01588602/ [Concomitant]
     Active Substance: ROSUVASTATIN CALCIUM
     Indication: PRODUCT USED FOR UNKNOWN INDICATION
     Dosage: UNK
  8. CICLOSPORIN [Suspect]
     Active Substance: CYCLOSPORINE
     Indication: GRANULOMATOSIS WITH POLYANGIITIS
  9. MYCOPHENOLATE MOFETIL. [Suspect]
     Active Substance: MYCOPHENOLATE MOFETIL
     Indication: GRANULOMATOSIS WITH POLYANGIITIS
  10. FENOFIBRATE. [Concomitant]
     Active Substance: FENOFIBRATE
     Indication: PRODUCT USED FOR UNKNOWN INDICATION
     Dosage: UNK
  11. RAMIPRIL. [Concomitant]
     Active Substance: RAMIPRIL
     Indication: PRODUCT USED FOR UNKNOWN INDICATION
     Dosage: UNK
  12. VORICONAZOLE. [Suspect]
     Active Substance: VORICONAZOLE
     Indication: BRONCHOPULMONARY ASPERGILLOSIS
     Dosage: UNK
  13. CICLOSPORIN [Suspect]
     Active Substance: CYCLOSPORINE
     Indication: IMMUNOSUPPRESSANT DRUG THERAPY
     Dosage: 1.6 MILLIGRAM/KILOGRAM

REACTIONS (5)
  - Bronchopulmonary aspergillosis [Unknown]
  - Drug intolerance [Unknown]
  - Drug ineffective [Unknown]
  - Papillary renal cell carcinoma [Unknown]
  - Off label use [Unknown]
